FAERS Safety Report 10373890 (Version 1)
Quarter: 2014Q1

REPORT INFORMATION
  Report Type: Spontaneous
  Country: US (occurrence: None)
  Receive Date: 20140306
  Receipt Date: 20140306
  Transmission Date: 20141002
  Serious: Yes (Disabling, Other)
  Sender: FDA-Public Use
  Company Number: 163-21880-13074317

PATIENT
  Age: 74 Year
  Sex: Male

DRUGS (5)
  1. REVLIMID [Suspect]
     Indication: MYELODYSPLASTIC SYNDROME
     Dosage: 10 MG, 28 IN 28 D, PO
     Route: 048
     Dates: start: 20130624, end: 20130917
  2. COMPAZINE (PROCHLORPERAZINE EDISYLATE) [Concomitant]
  3. ALLOPURINOL [Concomitant]
  4. ASA (ACETYLSALICYLIC ACID) [Concomitant]
  5. TRIAMTERENE/HCTZ (DYAZIDE) [Concomitant]

REACTIONS (2)
  - Neutropenia [None]
  - Platelet count decreased [None]
